FAERS Safety Report 4887159-7 (Version None)
Quarter: 2006Q1

REPORT INFORMATION
  Report Type: 
  Country: None (occurrence: None)
  Receive Date: 20060120
  Receipt Date: 20051005
  Transmission Date: 20060701
  Serious: Yes (Hospitalization, Disabling)
  Sender: FDA-Public Use
  Company Number: US-MERCK-0510USA05215

PATIENT
  Age: 45 Year
  Sex: Male
  Weight: 136 kg

DRUGS (1)
  1. VIOXX [Suspect]
     Indication: UPPER LIMB FRACTURE
     Route: 048
     Dates: start: 20020415, end: 20030101

REACTIONS (12)
  - ANGINA PECTORIS [None]
  - ANGINA UNSTABLE [None]
  - CARDIAC FAILURE [None]
  - CARDIOVASCULAR DISORDER [None]
  - CHEST PAIN [None]
  - CORONARY ARTERY DISEASE [None]
  - DEPRESSION [None]
  - DIZZINESS [None]
  - HYPERLIPIDAEMIA [None]
  - HYPERTENSION [None]
  - MYOCARDIAL INFARCTION [None]
  - TRANSIENT ISCHAEMIC ATTACK [None]
